FAERS Safety Report 4531611-0 (Version None)
Quarter: 2004Q4

REPORT INFORMATION
  Report Type: 
  Country: None (occurrence: None)
  Receive Date: 20041216
  Receipt Date: 20041203
  Transmission Date: 20050328
  Serious: Yes (Hospitalization, Other)
  Sender: FDA-Public Use
  Company Number: 2004104723

PATIENT
  Age: 62 Year
  Sex: Male

DRUGS (9)
  1. DILANTIN [Suspect]
     Indication: CONVULSION
  2. LIPITOR [Suspect]
     Indication: BLOOD CHOLESTEROL INCREASED
     Dosage: 20 MG (20 MG, 1  IN 1 D)
  3. ANTINEOPLASTIC AGENTS (ANTINEOPLASTIC AGENTS) [Suspect]
     Indication: HEPATIC NEOPLASM MALIGNANT
     Dosage: INTRAVENOUS
     Route: 042
  4. PHENOBARBITAL TAB [Concomitant]
  5. FUROSEMIDE [Concomitant]
  6. OMEPRAZOLE [Concomitant]
  7. LEVOTHYROXINE SODIUM [Concomitant]
  8. IRON (IRON) [Concomitant]
  9. CENTRUM (MINERALS NOS, VITAMINS NOS) [Concomitant]

REACTIONS (11)
  - BACK DISORDER [None]
  - BLOOD CHOLESTEROL INCREASED [None]
  - BODY HEIGHT DECREASED [None]
  - CHEST INJURY [None]
  - CHOLELITHIASIS [None]
  - COLORECTAL CANCER [None]
  - FLUID RETENTION [None]
  - GALLBLADDER DISORDER [None]
  - HEPATIC NEOPLASM MALIGNANT [None]
  - ROAD TRAFFIC ACCIDENT [None]
  - THERAPY NON-RESPONDER [None]
